FAERS Safety Report 4558165-7 (Version None)
Quarter: 2005Q1

REPORT INFORMATION
  Report Type: 
  Country: None (occurrence: None)
  Receive Date: 20050103
  Receipt Date: 20041029
  Transmission Date: 20050727
  Serious: Yes (Other)
  Sender: FDA-Public Use
  Company Number: 2004UW22403

PATIENT
  Age: 47 Year
  Sex: Female
  Weight: 86.182 kg

DRUGS (4)
  1. CRESTOR [Suspect]
     Indication: HYPERCHOLESTEROLAEMIA
     Dosage: 10 MG PO
     Route: 048
     Dates: start: 20041021
  2. CRESTOR [Suspect]
     Indication: HYPERCHOLESTEROLAEMIA
     Dosage: 5 MG PO
     Route: 048
  3. ZYRTEC [Concomitant]
  4. NASAL INHALERS [Concomitant]

REACTIONS (3)
  - ASTHENIA [None]
  - DIFFICULTY IN WALKING [None]
  - MYALGIA [None]
